FAERS Safety Report 15791855 (Version 3)
Quarter: 2019Q1

REPORT INFORMATION
  Report Type: Report from Study
  Country: GB (occurrence: GB)
  Receive Date: 20190105
  Receipt Date: 20190203
  Transmission Date: 20190417
  Serious: Yes (Hospitalization)
  Sender: FDA-Public Use
  Company Number: PHHO2014GB019874

PATIENT
  Age: 81 Year
  Sex: Female
  Weight: 57.8 kg

DRUGS (18)
  1. PARACETAMOL [Concomitant]
     Active Substance: ACETAMINOPHEN
     Indication: CHRONIC LYMPHOCYTIC LEUKAEMIA
     Dosage: 1 G, UNK
     Route: 048
     Dates: start: 20140307
  2. GENTAMICIN. [Concomitant]
     Active Substance: GENTAMICIN
     Indication: INFECTION
     Dosage: 440 MG, UNK
     Route: 042
     Dates: start: 20140626, end: 20140627
  3. AMLODIPINE [Concomitant]
     Active Substance: AMLODIPINE BESYLATE
     Indication: PRODUCT USED FOR UNKNOWN INDICATION
     Dosage: 5.0 MG, UNK
     Route: 065
  4. OMEPRAZOLE. [Concomitant]
     Active Substance: OMEPRAZOLE
     Indication: PROPHYLAXIS
     Dosage: 20 MG, UNK
     Route: 048
     Dates: start: 20140307
  5. COTRIMOXAZOLE [Concomitant]
     Active Substance: SULFAMETHOXAZOLE\TRIMETHOPRIM
     Indication: PRODUCT USED FOR UNKNOWN INDICATION
     Route: 065
  6. CHLORAMBUCIL [Suspect]
     Active Substance: CHLORAMBUCIL
     Indication: CHRONIC LYMPHOCYTIC LEUKAEMIA
     Dosage: 14 MG, CYCLIC
     Route: 048
     Dates: start: 20140307
  7. CHLORPHENIRAMINE. [Concomitant]
     Active Substance: CHLORPHENIRAMINE
     Indication: CHRONIC LYMPHOCYTIC LEUKAEMIA
     Dosage: 10 MG, UNK
     Route: 042
     Dates: start: 20140307
  8. TAZOCIN [Concomitant]
     Active Substance: PIPERACILLIN SODIUM\TAZOBACTAM SODIUM
     Indication: INFECTION
     Dosage: 4.5 G, UNK
     Route: 042
     Dates: start: 20140626
  9. OFATUMUMAB [Suspect]
     Active Substance: OFATUMUMAB
     Indication: CHRONIC LYMPHOCYTIC LEUKAEMIA
     Dosage: 1000 MG, CYCLIC
     Route: 042
     Dates: start: 20140307
  10. HYDROCORTISONE. [Concomitant]
     Active Substance: HYDROCORTISONE
     Indication: CHRONIC LYMPHOCYTIC LEUKAEMIA
     Dosage: 100 MG, UNK
     Route: 042
     Dates: start: 20140307
  11. NO TREATMENT RECEIVED [Suspect]
     Active Substance: UNSPECIFIED INGREDIENT
     Indication: CHRONIC LYMPHOCYTIC LEUKAEMIA
     Dosage: UNK, NO TREATMENT
     Route: 065
  12. METOCLOPRAMIDE. [Concomitant]
     Active Substance: METOCLOPRAMIDE
     Indication: CHRONIC LYMPHOCYTIC LEUKAEMIA
     Dosage: 10 MG, UNK
     Route: 048
     Dates: start: 20140307
  13. CANDESARTAN. [Concomitant]
     Active Substance: CANDESARTAN
     Indication: BLOOD PRESSURE MEASUREMENT
     Dosage: 8 MG, UNK
     Route: 048
  14. CALCICHEW [Concomitant]
     Active Substance: CALCIUM CARBONATE
     Indication: BLOOD CALCIUM DECREASED
     Dosage: 2 DF, UNK
     Route: 048
     Dates: start: 20140622, end: 20140708
  15. ACICLOVIR [Concomitant]
     Active Substance: ACYCLOVIR
     Indication: CHRONIC LYMPHOCYTIC LEUKAEMIA
     Dosage: 400 MG, UNK
     Route: 048
     Dates: start: 20140307
  16. G-CSF [Concomitant]
     Active Substance: GRANULOCYTE COLONY-STIMULATING FACTOR NOS
     Indication: PRODUCT USED FOR UNKNOWN INDICATION
     Dosage: UNK
     Route: 065
  17. ALLOPURINOL. [Concomitant]
     Active Substance: ALLOPURINOL
     Indication: CHRONIC LYMPHOCYTIC LEUKAEMIA
     Dosage: 300 MG, UNK
     Route: 048
     Dates: start: 20140307
  18. METOCLOPRAMIDE. [Concomitant]
     Active Substance: METOCLOPRAMIDE
     Indication: NAUSEA

REACTIONS (2)
  - Neutropenic sepsis [Recovered/Resolved]
  - Urinary tract infection [Recovered/Resolved]

NARRATIVE: CASE EVENT DATE: 20140625
